FAERS Safety Report 6168623-X (Version None)
Quarter: 2009Q2

REPORT INFORMATION
  Report Type: 
  Country: None (occurrence: None)
  Receive Date: 20090423
  Receipt Date: 20090415
  Transmission Date: 20091009
  Serious: Yes (Other)
  Sender: FDA-Public Use
  Company Number: ADE2009-0557

PATIENT
  Age: 33 Year
  Sex: Male

DRUGS (3)
  1. CITALOPRAM HYDROBROMIDE [Suspect]
     Indication: DEPRESSION
     Dosage: 40MG - ORAL
     Route: 048
     Dates: start: 20070509
  2. MIRTAZAPINE [Suspect]
     Indication: SLEEP DISORDER
     Dosage: 15MG
     Dates: start: 20080212
  3. CINNARIZINE [Concomitant]

REACTIONS (6)
  - AFFECTIVE DISORDER [None]
  - AGGRESSION [None]
  - ALCOHOL USE [None]
  - MEMORY IMPAIRMENT [None]
  - MENTAL IMPAIRMENT [None]
  - PHYSICAL ASSAULT [None]
